FAERS Safety Report 19969293 (Version 1)
Quarter: 2021Q4

REPORT INFORMATION
  Report Type: Spontaneous
  Country: US (occurrence: US)
  Receive Date: 20211019
  Receipt Date: 20211019
  Transmission Date: 20220303
  Serious: No
  Sender: FDA-Public Use
  Company Number: US-DRREDDYS-SPO/USA/21/0142609

PATIENT
  Age: 25 Year
  Sex: Female

DRUGS (2)
  1. ZENATANE [Suspect]
     Active Substance: ISOTRETINOIN
     Indication: Product used for unknown indication
     Dosage: RMA ISSUE DATE:12 MAY 2021 3:32:16 PM,1 JULY 2021 10:48:31 AM
  2. ZENATANE [Suspect]
     Active Substance: ISOTRETINOIN
     Dosage: RMA ISSUE DATE:05 AUGUST 2021 11:07:16 AM ,14 SEPTEMBER 2021 5:47:12 PM

REACTIONS (1)
  - Psoriasis [Unknown]
